FAERS Safety Report 8273365-0 (Version None)
Quarter: 2012Q2

REPORT INFORMATION
  Report Type: 
  Country: None (occurrence: None)
  Receive Date: 20120411
  Receipt Date: 20120402
  Transmission Date: 20120825
  Serious: Yes (Other)
  Sender: FDA-Public Use
  Company Number: PHHY2011FR101102

PATIENT
  Sex: Female
  Weight: 60 kg

DRUGS (4)
  1. TEGRETOL [Suspect]
     Indication: FACIAL NEURALGIA
     Dosage: 800 MG DAILY
     Route: 048
     Dates: start: 20070101
  2. ASPIRIN [Concomitant]
     Dates: start: 20040101
  3. BISOPROLOL FUMARATE AND HYDROCHLOROTHIAZIDE [Concomitant]
     Dates: start: 20040101
  4. ALPRAZOLAM [Concomitant]
     Dates: start: 20040101

REACTIONS (5)
  - DIPLOPIA [None]
  - BASEDOW'S DISEASE [None]
  - EXTRAOCULAR MUSCLE DISORDER [None]
  - HYPERTHYROIDISM [None]
  - WEIGHT DECREASED [None]
